FAERS Safety Report 12690688 (Version 1)
Quarter: 2016Q3

REPORT INFORMATION
  Report Type: Spontaneous
  Country: US (occurrence: US)
  Receive Date: 20160826
  Receipt Date: 20160826
  Transmission Date: 20161109
  Serious: Yes (Hospitalization, Other)
  Sender: FDA-Public Use
  Company Number: US-ELI_LILLY_AND_COMPANY-US201608011982

PATIENT
  Age: 33 Year
  Sex: Female

DRUGS (10)
  1. PROZAC [Suspect]
     Active Substance: FLUOXETINE HYDROCHLORIDE
     Indication: GENERALISED ANXIETY DISORDER
     Dosage: 20 MG, QD
     Route: 048
  2. AMPICILLIN [Concomitant]
     Active Substance: AMPICILLIN
     Dosage: UNK, UNKNOWN
  3. PROZAC [Suspect]
     Active Substance: FLUOXETINE HYDROCHLORIDE
     Indication: DEPRESSION
  4. IRON [Concomitant]
     Active Substance: IRON
     Dosage: 1 UNK, UNK
     Route: 048
  5. PRENATAL VITAMINS                  /02014401/ [Concomitant]
     Active Substance: VITAMINS
     Dosage: UNK UNK, QD
     Route: 048
  6. DARVOCET-N 100 [Concomitant]
     Active Substance: ACETAMINOPHEN\PROPOXYPHENE NAPSYLATE
     Indication: HEADACHE
     Dosage: UNK UNK, UNKNOWN
  7. CELESTONE [Concomitant]
     Active Substance: BETAMETHASONE
     Dosage: 12.5 MG, QD
     Route: 030
  8. DDAVP [Concomitant]
     Active Substance: DESMOPRESSIN ACETATE
     Indication: PREMEDICATION
     Dosage: UNK UNK, UNKNOWN
     Route: 042
  9. TERBUTALINE [Concomitant]
     Active Substance: TERBUTALINE
     Indication: TOCOLYSIS
     Dosage: UNK, UNKNOWN
  10. COLACE [Concomitant]
     Active Substance: DOCUSATE SODIUM
     Dosage: UNK UNK, BID
     Route: 048

REACTIONS (4)
  - Oligohydramnios [Unknown]
  - Exposure during pregnancy [Recovered/Resolved]
  - Preterm premature rupture of membranes [Unknown]
  - Premature labour [Unknown]

NARRATIVE: CASE EVENT DATE: 20040209
